FAERS Safety Report 18778980 (Version 7)
Quarter: 2021Q2

REPORT INFORMATION
  Report Type: Other
  Country: BG (occurrence: BG)
  Receive Date: 20210124
  Receipt Date: 20210616
  Transmission Date: 20210717
  Serious: No
  Sender: FDA-Public Use
  Company Number: BG-ROCHE-2755541

PATIENT
  Age: 70 Year
  Sex: Male
  Weight: 75 kg

DRUGS (23)
  1. ATEZOLIZUMAB. [Suspect]
     Active Substance: ATEZOLIZUMAB
     Route: 042
     Dates: start: 20201229
  2. PARACETAMOL [Concomitant]
     Active Substance: ACETAMINOPHEN
     Indication: CHILLS
     Dates: start: 20201001, end: 20201001
  3. ATEZOLIZUMAB. [Suspect]
     Active Substance: ATEZOLIZUMAB
     Indication: NON-SMALL CELL LUNG CANCER
     Dosage: SUBSEQUENT DOSE RECEIVED ON 22/OCT/2020, 13/NOV/2020, 08/DEC/2020, 29/DEC/2020
     Route: 041
     Dates: start: 20201002
  4. FLIXOTIDE [Concomitant]
     Active Substance: FLUTICASONE PROPIONATE
     Dates: start: 2017
  5. XARELTO [Concomitant]
     Active Substance: RIVAROXABAN
     Indication: ARRHYTHMIA
     Dates: start: 20201106
  6. OXYCODONE [Concomitant]
     Active Substance: OXYCODONE
     Dates: start: 20201208
  7. NOOTROPIL [Concomitant]
     Active Substance: PIRACETAM
     Dates: start: 20210324, end: 20210329
  8. ATEZOLIZUMAB. [Suspect]
     Active Substance: ATEZOLIZUMAB
     Route: 042
     Dates: start: 20201113
  9. ATEZOLIZUMAB. [Suspect]
     Active Substance: ATEZOLIZUMAB
     Route: 042
     Dates: start: 20201022
  10. BEVACIZUMAB. [Suspect]
     Active Substance: BEVACIZUMAB
     Indication: NON-SMALL CELL LUNG CANCER
     Route: 065
     Dates: start: 20201002
  11. CARBOPLATIN. [Suspect]
     Active Substance: CARBOPLATIN
     Indication: NON-SMALL CELL LUNG CANCER
     Route: 065
     Dates: start: 20201002
  12. PACLITAXEL. [Suspect]
     Active Substance: PACLITAXEL
     Indication: NON-SMALL CELL LUNG CANCER
     Route: 065
     Dates: start: 20201002
  13. DEXAMETHASONE. [Concomitant]
     Active Substance: DEXAMETHASONE
     Dates: start: 20210324, end: 20210329
  14. CONCOR [Concomitant]
     Active Substance: BISOPROLOL FUMARATE
     Indication: HYPERTENSION
     Dates: start: 202007
  15. OXYCODONE [Concomitant]
     Active Substance: OXYCODONE
     Dates: start: 20210302
  16. MANNITOL. [Concomitant]
     Active Substance: MANNITOL
     Dates: start: 20210324, end: 20210329
  17. ATEZOLIZUMAB. [Suspect]
     Active Substance: ATEZOLIZUMAB
     Route: 042
     Dates: start: 20201208
  18. ATEZOLIZUMAB. [Suspect]
     Active Substance: ATEZOLIZUMAB
     Route: 042
     Dates: start: 20200910
  19. ANORO ELLIPTA [Concomitant]
     Active Substance: UMECLIDINIUM BROMIDE\VILANTEROL TRIFENATATE
     Dates: start: 2017
  20. SODIUM CHLORIDE. [Concomitant]
     Active Substance: SODIUM CHLORIDE
     Dates: start: 20210324, end: 20210329
  21. NEURITOGEN [Concomitant]
     Active Substance: DIETARY SUPPLEMENT\HERBALS
     Dates: start: 20210519
  22. OLSART [Concomitant]
     Indication: HYPERTENSION
     Dates: start: 202007
  23. CAVINTON [Concomitant]
     Active Substance: VINPOCETINE
     Dates: start: 20210324, end: 20210329

REACTIONS (1)
  - Polyarthritis [Not Recovered/Not Resolved]

NARRATIVE: CASE EVENT DATE: 20201215
